FAERS Safety Report 8121061-2 (Version None)
Quarter: 2012Q1

REPORT INFORMATION
  Report Type: 
  Country: None (occurrence: None)
  Receive Date: 20120203
  Receipt Date: 20120124
  Transmission Date: 20120608
  Serious: Yes (Other)
  Sender: FDA-Public Use
  Company Number: 1166070

PATIENT
  Age: 61 Year
  Sex: Male
  Weight: 34.0198 kg

DRUGS (3)
  1. FLUOROURACIL [Suspect]
     Indication: RECTAL CANCER
     Dosage: 5488 MG MILLIGRAM(S), INTRAVENOUS
     Route: 042
     Dates: start: 20101124, end: 20110713
  2. TEMOZOLOMIDE [Suspect]
     Indication: RECTAL CANCER
     Dosage: 280 MG MILLIGRAM(S), 14 DAY, INTRAVENOUS (NOT OTHERWISE SPECIFIED)
     Route: 042
     Dates: start: 20101124, end: 20110713
  3. AVASTIN [Suspect]
     Indication: RECTAL CANCER
     Dosage: 415 MG MILLIGRAM(S), 14 DAY, INTRAVENOUS (NOT OTHERWISE SPECIFIED)
     Route: 042
     Dates: start: 20101124, end: 20110713

REACTIONS (1)
  - HAEMATURIA [None]
